FAERS Safety Report 8495549-9 (Version None)
Quarter: 2012Q3

REPORT INFORMATION
  Report Type: 
  Country: None (occurrence: None)
  Receive Date: 20120709
  Receipt Date: 20120705
  Transmission Date: 20120928
  Serious: Yes (Other)
  Sender: FDA-Public Use
  Company Number: FR-ROCHE-1057589

PATIENT
  Sex: Female

DRUGS (3)
  1. PEGASYS [Suspect]
     Indication: HEPATITIS C
     Route: 058
  2. COPEGUS [Suspect]
     Indication: HEPATITIS C
     Route: 048
  3. INCIVO [Suspect]
     Indication: HEPATITIS C
     Route: 048
     Dates: end: 20120220

REACTIONS (4)
  - PYREXIA [None]
  - DERMATITIS EXFOLIATIVE [None]
  - PRURITUS [None]
  - DYSPHAGIA [None]
